FAERS Safety Report 12513950 (Version 1)
Quarter: 2016Q2

REPORT INFORMATION
  Report Type: Spontaneous
  Country: US (occurrence: None)
  Receive Date: 20160629
  Receipt Date: 20160629
  Transmission Date: 20160815
  Serious: No
  Sender: FDA-Public Use
  Company Number: None

PATIENT
  Age: 27 Year
  Sex: Male

DRUGS (9)
  1. APAP [Concomitant]
     Active Substance: ACETAMINOPHEN
  2. HALOPERIDOL. [Suspect]
     Active Substance: HALOPERIDOL
     Indication: PSYCHOTIC DISORDER
     Route: 048
     Dates: start: 20160201, end: 20160229
  3. MAALOX ANTACID [Concomitant]
     Active Substance: ALUMINUM HYDROXIDE\DIMETHICONE\MAGNESIUM HYDROXIDE
  4. TETRAHYDROZOLINE [Concomitant]
     Active Substance: TETRAHYDROZOLINE
  5. BENZTROPINE [Concomitant]
     Active Substance: BENZTROPINE
  6. MOM [Concomitant]
     Active Substance: MAGNESIUM HYDROXIDE
  7. IBUPROFEN. [Concomitant]
     Active Substance: IBUPROFEN
  8. DIVALPROEX ER [Concomitant]
     Active Substance: DIVALPROEX SODIUM
  9. CYPROHEPTADINE. [Concomitant]
     Active Substance: CYPROHEPTADINE

REACTIONS (2)
  - Restlessness [None]
  - Anxiety [None]

NARRATIVE: CASE EVENT DATE: 20160218
